FAERS Safety Report 6708664-4 (Version None)
Quarter: 2010Q2

REPORT INFORMATION
  Report Type: 
  Country: None (occurrence: None)
  Receive Date: 20100503
  Receipt Date: 20100427
  Transmission Date: 20101027
  Serious: Yes (Other)
  Sender: FDA-Public Use
  Company Number: US-RB-005949-10

PATIENT
  Sex: Male

DRUGS (1)
  1. SUBOXONE [Suspect]
     Route: 065
     Dates: start: 20071101, end: 20080514

REACTIONS (2)
  - DRUG EXPOSURE DURING PREGNANCY [None]
  - PREMATURE BABY [None]
